FAERS Safety Report 15416964 (Version 2)
Quarter: 2018Q3

REPORT INFORMATION
  Report Type: Report from Study
  Country: DE (occurrence: DE)
  Receive Date: 20180924
  Receipt Date: 20180928
  Transmission Date: 20181010
  Serious: Yes (Hospitalization, Other)
  Sender: FDA-Public Use
  Company Number: DE-AUROBINDO-AUR-APL-2018-047212

PATIENT
  Age: 14 Year
  Sex: Female
  Weight: 76.6 kg

DRUGS (5)
  1. CITALOPRAM [Suspect]
     Active Substance: CITALOPRAM HYDROBROMIDE
     Indication: MAJOR DEPRESSION
     Dosage: INCREASED FROM 20 MG TO 60 MG DAILY, LATER 800 MG AS A SINGLE DOSE ()
     Route: 065
  2. CITALOPRAM [Suspect]
     Active Substance: CITALOPRAM HYDROBROMIDE
     Indication: SUICIDE ATTEMPT
     Dosage: 800 MILLIGRAM
     Route: 065
  3. CITALOPRAM [Suspect]
     Active Substance: CITALOPRAM HYDROBROMIDE
     Dosage: 800 MILLIGRAM, OVERDOSE: 800 MG
     Route: 065
  4. CITALOPRAM [Suspect]
     Active Substance: CITALOPRAM HYDROBROMIDE
     Dosage: 20 MILLIGRAM, OVERDOSE: 60 MG
     Route: 065
  5. CITALOPRAM [Suspect]
     Active Substance: CITALOPRAM HYDROBROMIDE
     Dosage: 60 MILLIGRAM
     Route: 065

REACTIONS (9)
  - Somnolence [Recovered/Resolved]
  - Prescribed overdose [Unknown]
  - Suicide attempt [Recovered/Resolved]
  - Dizziness [Recovered/Resolved]
  - Electrocardiogram QT prolonged [Recovered/Resolved]
  - Neurological symptom [Unknown]
  - Intentional overdose [Unknown]
  - Drug administered to patient of inappropriate age [Unknown]
  - Toxicity to various agents [Recovered/Resolved]
